FAERS Safety Report 10014437 (Version 1)
Quarter: 2014Q1

REPORT INFORMATION
  Report Type: Report from Study
  Country: US (occurrence: US)
  Receive Date: 20140317
  Receipt Date: 20140317
  Transmission Date: 20141002
  Serious: Yes (Other)
  Sender: FDA-Public Use
  Company Number: US-JNJFOC-20140307259

PATIENT
  Sex: Female
  Weight: 97.07 kg

DRUGS (18)
  1. REMICADE [Suspect]
     Indication: PSORIATIC ARTHROPATHY
     Route: 042
     Dates: start: 2009, end: 2009
  2. METHOTREXATE [Concomitant]
     Indication: PSORIATIC ARTHROPATHY
     Dosage: 8 TABLETS
     Route: 048
     Dates: start: 2007
  3. FOLIC ACID [Concomitant]
     Indication: VITAMIN SUPPLEMENTATION
     Route: 048
     Dates: start: 2007
  4. FLEXERIL [Concomitant]
     Indication: MUSCLE SPASMS
     Route: 048
     Dates: start: 2006
  5. PROTONIX [Concomitant]
     Indication: GASTROOESOPHAGEAL REFLUX DISEASE
     Route: 048
     Dates: start: 2010
  6. LISINOPRIL WITH HCTZ [Concomitant]
     Indication: HYPERTENSION
     Dosage: 20/25MG
     Route: 048
  7. DILTIAZEM CD [Concomitant]
     Indication: HYPERTENSION
     Route: 048
     Dates: start: 2002
  8. ACTOS [Concomitant]
     Indication: DIABETES MELLITUS
     Route: 048
     Dates: start: 2007
  9. METFORMIN [Concomitant]
     Indication: DIABETES MELLITUS
     Route: 048
     Dates: start: 2005
  10. LORAZEPAM [Concomitant]
     Indication: PANIC ATTACK
     Route: 048
     Dates: start: 1992
  11. LEXAPRO [Concomitant]
     Indication: DEPRESSION
     Route: 048
     Dates: start: 2009
  12. LYRICA [Concomitant]
     Indication: NERVE INJURY
     Route: 048
     Dates: start: 2006
  13. ESTRADIOL [Concomitant]
     Indication: HORMONE REPLACEMENT THERAPY
     Route: 048
     Dates: start: 2006
  14. FENTANYL [Concomitant]
     Indication: PAIN
     Route: 065
     Dates: start: 2006
  15. FISH OIL [Concomitant]
     Route: 065
  16. VITAMIN D [Concomitant]
     Route: 065
  17. CALCIUM [Concomitant]
     Route: 065
  18. CINNAMON [Concomitant]
     Route: 065

REACTIONS (1)
  - Benign lung neoplasm [Recovered/Resolved]
